FAERS Safety Report 6750122 (Version 7)
Quarter: 2020Q3

REPORT INFORMATION
  Report Type: Report from Study
  Country: US (occurrence: US)
  Receive Date: 20080908
  Receipt Date: 20100429
  Transmission Date: 20201105
  Serious: Yes (Hospitalization)
  Sender: FDA-Public Use
  Company Number: US-JNJFOC-20080805259

PATIENT
  Age: 12 Year
  Sex: Female
  Weight: 35.3 kg

DRUGS (6)
  1. PREDNISONE. [Concomitant]
     Active Substance: PREDNISONE
     Indication: COLITIS ULCERATIVE
     Route: 048
  2. INFLIXIMAB [Suspect]
     Active Substance: INFLIXIMAB
     Dosage: WEEK 0
     Route: 042
  3. FOLIC ACID. [Concomitant]
     Active Substance: FOLIC ACID
     Route: 048
  4. INFLIXIMAB [Suspect]
     Active Substance: INFLIXIMAB
     Indication: COLITIS ULCERATIVE
     Dosage: WEEK 2
     Route: 042
  5. OMEPRAZOLE. [Concomitant]
     Active Substance: OMEPRAZOLE
     Route: 048
  6. ASACOL [Concomitant]
     Active Substance: MESALAMINE
     Indication: COLITIS ULCERATIVE
     Route: 048

REACTIONS (1)
  - Colitis ulcerative [Recovered/Resolved with Sequelae]

NARRATIVE: CASE EVENT DATE: 20080813
